FAERS Safety Report 8808428 (Version 1)
Quarter: 2012Q4

REPORT INFORMATION
  Report Type: Spontaneous
  Country: US (occurrence: None)
  Receive Date: 20120920
  Receipt Date: 20120920
  Transmission Date: 20130627
  Serious: Yes (Hospitalization)
  Sender: FDA-Public Use
  Company Number: None

PATIENT
  Age: 32 Year
  Sex: Male

DRUGS (1)
  1. BACTRIM [Suspect]
     Indication: DRUG INDUCED LIVER INJURY
     Dates: start: 20101021, end: 20101204

REACTIONS (2)
  - Drug-induced liver injury [None]
  - Rash erythematous [None]
